FAERS Safety Report 9536507 (Version 1)
Quarter: 2013Q3

REPORT INFORMATION
  Report Type: Report from Study
  Country: FR (occurrence: FR)
  Receive Date: 20130919
  Receipt Date: 20130919
  Transmission Date: 20140515
  Serious: Yes (Death, Hospitalization)
  Sender: FDA-Public Use
  Company Number: FR-ASTELLAS-2013EU007915

PATIENT
  Age: 84 Year
  Sex: Male
  Weight: 56 kg

DRUGS (2)
  1. ENZALUTAMIDE [Suspect]
     Indication: PROSTATE CANCER
     Dosage: 160 MG, UID/QD
     Route: 048
     Dates: start: 20130313, end: 20130502
  2. TOPALGIC                           /00599202/ [Concomitant]
     Indication: PAIN
     Dosage: 50 MG, UID/QD
     Route: 065
     Dates: start: 20130320, end: 20130404

REACTIONS (3)
  - General physical health deterioration [Fatal]
  - Aspartate aminotransferase increased [Fatal]
  - Nausea [Recovered/Resolved]
